FAERS Safety Report 8909711 (Version 1)
Quarter: 2012Q4

REPORT INFORMATION
  Report Type: 
  Country: DE (occurrence: DE)
  Receive Date: 20121115
  Receipt Date: 20121115
  Transmission Date: 20130627
  Serious: Yes (Other)
  Sender: FDA-Public Use
  Company Number: DE-NAPPMUNDI-DEU-2012-0009771

PATIENT
  Age: 65 Year
  Sex: Female

DRUGS (4)
  1. OXYGESIC [Suspect]
     Indication: PAIN
     Dosage: 20 mg, bid
     Route: 065
  2. OXYGESIC [Suspect]
     Indication: FIBROMYALGIA
     Dosage: UNK
     Dates: start: 2004
  3. VOLTAREN                           /00372301/ [Concomitant]
  4. DOXEPIN [Concomitant]

REACTIONS (4)
  - Tooth extraction [Unknown]
  - Root inflammation [Unknown]
  - Gingival inflammation [Unknown]
  - Toothache [Unknown]
